FAERS Safety Report 15073709 (Version 1)
Quarter: 2018Q2

REPORT INFORMATION
  Report Type: Spontaneous
  Country: GE (occurrence: GE)
  Receive Date: 20180627
  Receipt Date: 20180627
  Transmission Date: 20180711
  Serious: Yes (Other)
  Sender: FDA-Public Use
  Company Number: PHHY2018GE025520

PATIENT
  Age: 48 Year
  Sex: Female

DRUGS (1)
  1. MYCOPHENOLATE MOFETIL. [Suspect]
     Active Substance: MYCOPHENOLATE MOFETIL
     Indication: FUNGAL SKIN INFECTION
     Dosage: 1 G, BID
     Route: 065

REACTIONS (3)
  - Neuroendocrine carcinoma of the skin [Unknown]
  - Human polyomavirus infection [Unknown]
  - Product use in unapproved indication [Unknown]
